FAERS Safety Report 12068209 (Version 1)
Quarter: 2016Q1

REPORT INFORMATION
  Report Type: Spontaneous
  Country: US (occurrence: US)
  Receive Date: 20160211
  Receipt Date: 20160211
  Transmission Date: 20160526
  Serious: No
  Sender: FDA-Public Use
  Company Number: US-SMITH AND NEPHEW, INC-2015SMT00436

PATIENT
  Age: 50 Year
  Sex: Female
  Weight: 108.84 kg

DRUGS (9)
  1. CRESTOR [Concomitant]
     Active Substance: ROSUVASTATIN CALCIUM
  2. REGRANEX [Suspect]
     Active Substance: BECAPLERMIN
     Indication: POSTOPERATIVE WOUND COMPLICATION
     Dosage: UNK UNK, 1X/DAY
     Route: 061
     Dates: start: 20151012
  3. NORCO [Concomitant]
     Active Substance: ACETAMINOPHEN\HYDROCODONE BITARTRATE
  4. FLU SHOT (UNSPECIFIED) [Suspect]
     Active Substance: INFLUENZA VIRUS VACCINE
     Dosage: UNK, ONCE
     Dates: start: 20151016, end: 20151016
  5. TOPAMAX [Concomitant]
     Active Substance: TOPIRAMATE
  6. PAXIL [Concomitant]
     Active Substance: PAROXETINE HYDROCHLORIDE
  7. GABAPENTIN. [Concomitant]
     Active Substance: GABAPENTIN
  8. LISINOPRIL. [Concomitant]
     Active Substance: LISINOPRIL
  9. GLIPIZIDE ER [Concomitant]
     Active Substance: GLIPIZIDE

REACTIONS (6)
  - Application site erythema [Unknown]
  - Drug administered at inappropriate site [Not Recovered/Not Resolved]
  - Headache [Unknown]
  - Pyrexia [Recovered/Resolved]
  - Chills [Unknown]
  - Feeling hot [Recovered/Resolved]

NARRATIVE: CASE EVENT DATE: 20151012
